FAERS Safety Report 8951228 (Version 2)
Quarter: 2013Q1

REPORT INFORMATION
  Report Type: Spontaneous
  Country: FR (occurrence: FR)
  Receive Date: 20121207
  Receipt Date: 20130118
  Transmission Date: 20140127
  Serious: No
  Sender: FDA-Public Use
  Company Number: FR-EISAI INC-E3810-06111-SPO-FR

PATIENT
  Sex: Female
  Weight: 72 kg

DRUGS (1)
  1. PARIET (RABEPRAZOLE) [Suspect]
     Route: 048
     Dates: start: 2002

REACTIONS (1)
  - Gastric polyps [Unknown]
